FAERS Safety Report 22273862 (Version 2)
Quarter: 2024Q2

REPORT INFORMATION
  Report Type: Report from Study
  Country: US (occurrence: US)
  Receive Date: 20230502
  Receipt Date: 20240410
  Transmission Date: 20240716
  Serious: No
  Sender: FDA-Public Use
  Company Number: US-002147023-NVSC2023US099853

PATIENT
  Age: 76 Year
  Sex: Male

DRUGS (1)
  1. LEQVIO [Suspect]
     Active Substance: INCLISIRAN SODIUM
     Indication: Product used for unknown indication
     Dosage: UNK
     Route: 058
     Dates: start: 20230421

REACTIONS (3)
  - Injection site pain [Recovered/Resolved]
  - General physical health deterioration [Unknown]
  - Memory impairment [Unknown]

NARRATIVE: CASE EVENT DATE: 20230421
